FAERS Safety Report 6809072 (Version 3)
Quarter: 2018Q3

REPORT INFORMATION
  Report Type: Report from Study
  Country: JP (occurrence: JP)
  Receive Date: 20081112
  Receipt Date: 20180919
  Transmission Date: 20181010
  Serious: Yes (Hospitalization, Other)
  Sender: FDA-Public Use
  Company Number: PHHO2007JP11009

PATIENT
  Age: 28 Year
  Sex: Male
  Weight: 53 kg

DRUGS (43)
  1. TASIGNA [Suspect]
     Active Substance: NILOTINIB
     Indication: MENTAL DISORDER
  2. TASIGNA [Suspect]
     Active Substance: NILOTINIB
     Indication: ANALGESIC THERAPY
  3. INDOMETACIN [Concomitant]
     Active Substance: INDOMETHACIN
     Indication: ORAL PAIN
  4. SOLITA T [Concomitant]
     Indication: EATING DISORDER
  5. PHENOBAL [Concomitant]
     Active Substance: PHENOBARBITAL
  6. SELBEX [Concomitant]
     Active Substance: TEPRENONE
     Indication: ABDOMINAL DISCOMFORT
  7. URSO [Concomitant]
     Active Substance: URSODIOL
     Indication: BLOOD BILIRUBIN INCREASED
  8. MYSER [Concomitant]
     Active Substance: DIFLUPREDNATE
  9. TASIGNA [Suspect]
     Active Substance: NILOTINIB
     Indication: BLOOD BILIRUBIN INCREASED
     Route: 048
     Dates: start: 20060704, end: 20060717
  10. GLIVEC [Suspect]
     Active Substance: IMATINIB MESYLATE
     Dosage: 200 MG, QD
     Route: 048
     Dates: start: 20061028, end: 20061105
  11. GLIVEC [Suspect]
     Active Substance: IMATINIB MESYLATE
     Dosage: 400 MG, QD
     Route: 048
     Dates: start: 20061106
  12. GASTER [Concomitant]
     Active Substance: FAMOTIDINE
  13. TASIGNA [Suspect]
     Active Substance: NILOTINIB
     Indication: ABDOMINAL DISCOMFORT
     Route: 048
     Dates: start: 20060620, end: 20060703
  14. TASIGNA [Suspect]
     Active Substance: NILOTINIB
     Indication: NASOPHARYNGITIS
     Route: 048
     Dates: start: 20060718, end: 20060721
  15. TASIGNA [Suspect]
     Active Substance: NILOTINIB
     Indication: HERPES VIRUS INFECTION
     Route: 048
     Dates: start: 20060606, end: 20060606
  16. TASIGNA [Suspect]
     Active Substance: NILOTINIB
     Indication: ENCEPHALITIS
     Route: 048
     Dates: start: 20060607, end: 20060619
  17. NEO?MINOPHAGEN C [Concomitant]
     Active Substance: AMMONIUM GLYCYRRHIZATE
  18. LOXONIN [Concomitant]
     Active Substance: LOXOPROFEN SODIUM
     Indication: PYREXIA
  19. DASEN [Concomitant]
     Active Substance: SERRAPEPTASE
     Indication: NASOPHARYNGITIS
  20. ASVERIN (TIPEPIDINE HIBENZATE) [Concomitant]
     Active Substance: TIPEPIDINE HIBENZATE
     Indication: NASOPHARYNGITIS
  21. VENILON [Concomitant]
     Active Substance: HUMAN IMMUNOGLOBULIN G
  22. NEGMIN [Concomitant]
     Indication: STOMATITIS
  23. FLOMAX [Concomitant]
     Active Substance: TAMSULOSIN HYDROCHLORIDE
     Indication: NASOPHARYNGITIS
  24. TRANSAMIN [Concomitant]
     Active Substance: TRANEXAMIC ACID
  25. ADONA (CARBAZOCHROME SODIUM SULFONATE) [Concomitant]
     Active Substance: CARBAZOCHROME SODIUM SULFONATE
  26. SODIUM ALGINATE [Concomitant]
     Active Substance: SODIUM ALGINATE
  27. DIFLUCAN [Concomitant]
     Active Substance: FLUCONAZOLE
  28. GASTER [Concomitant]
     Active Substance: FAMOTIDINE
  29. TASIGNA [Suspect]
     Active Substance: NILOTINIB
     Indication: ACUTE LYMPHOCYTIC LEUKAEMIA
     Dosage: 200 MG, QD
     Route: 048
     Dates: start: 20060802, end: 20060804
  30. TASIGNA [Suspect]
     Active Substance: NILOTINIB
     Indication: PYREXIA
     Dosage: 400 MG, QD
     Route: 048
     Dates: start: 20060805, end: 20060825
  31. TASIGNA [Suspect]
     Active Substance: NILOTINIB
     Indication: HEPATIC FUNCTION ABNORMAL
     Route: 048
     Dates: start: 20060510, end: 20060604
  32. TASIGNA [Suspect]
     Active Substance: NILOTINIB
     Indication: GASTROINTESTINAL HAEMORRHAGE
     Route: 048
     Dates: start: 20060605, end: 20060605
  33. TASIGNA [Suspect]
     Active Substance: NILOTINIB
     Indication: INTRACRANIAL PRESSURE INCREASED
     Route: 048
     Dates: start: 20060509, end: 20060509
  34. VEEN D [Concomitant]
     Active Substance: CALCIUM CHLORIDE\DEXTROSE\POTASSIUM CHLORIDE\SODIUM ACETATE\SODIUM CHLORIDE
     Indication: EATING DISORDER
  35. ZOVIRAX [Concomitant]
     Active Substance: ACYCLOVIR
  36. VALTREX [Concomitant]
     Active Substance: VALACYCLOVIR HYDROCHLORIDE
  37. HACHIAZULE [Concomitant]
  38. SOSEGON [Concomitant]
     Active Substance: PENTAZOCINE
  39. CEFAMEZIN [Concomitant]
     Active Substance: CEFAZOLIN
  40. GLIVEC [Suspect]
     Active Substance: IMATINIB MESYLATE
     Indication: ACUTE LYMPHOCYTIC LEUKAEMIA
     Dosage: 400 MG, QD
     Route: 048
     Dates: start: 20060826, end: 20061008
  41. BAKTAR [Concomitant]
     Active Substance: SULFAMETHOXAZOLE\TRIMETHOPRIM
  42. CRAVIT [Concomitant]
     Active Substance: LEVOFLOXACIN
     Indication: NASOPHARYNGITIS
  43. POSTERISAN [Concomitant]
     Active Substance: LIDOCAINE

REACTIONS (23)
  - Headache [Not Recovered/Not Resolved]
  - Acute lymphocytic leukaemia recurrent [Unknown]
  - Pineal neoplasm [Recovering/Resolving]
  - Candida infection [Unknown]
  - Condition aggravated [Not Recovered/Not Resolved]
  - Loss of consciousness [Not Recovered/Not Resolved]
  - Encephalitis [Unknown]
  - Meningitis fungal [Unknown]
  - Cerebral ventricle dilatation [Not Recovered/Not Resolved]
  - Dizziness postural [Not Recovered/Not Resolved]
  - Blast crisis in myelogenous leukaemia [Unknown]
  - CSF cell count increased [Recovering/Resolving]
  - Intracranial pressure increased [Unknown]
  - Blast cells present [Recovering/Resolving]
  - Dizziness [Recovering/Resolving]
  - Brain oedema [Recovering/Resolving]
  - Ear disorder [Recovering/Resolving]
  - Neck pain [Not Recovered/Not Resolved]
  - Pancytopenia [Recovering/Resolving]
  - Hydrocephalus [Recovering/Resolving]
  - Device related infection [Unknown]
  - Staphylococcal infection [Unknown]
  - Central nervous system leukaemia [Recovering/Resolving]

NARRATIVE: CASE EVENT DATE: 200608
